FAERS Safety Report 10513282 (Version 1)
Quarter: 2014Q4

REPORT INFORMATION
  Report Type: Report from Study
  Country: CA (occurrence: CA)
  Receive Date: 20141013
  Receipt Date: 20141013
  Transmission Date: 20150528
  Serious: Yes (Hospitalization)
  Sender: FDA-Public Use
  Company Number: CA-ABBVIE-14K-028-1294051-00

PATIENT
  Sex: Male

DRUGS (1)
  1. HUMIRA [Suspect]
     Active Substance: ADALIMUMAB
     Indication: CROHN^S DISEASE
     Route: 058
     Dates: start: 20130731

REACTIONS (7)
  - Pyrexia [Unknown]
  - Hypotension [Unknown]
  - White blood cell count increased [Unknown]
  - Anxiety [Unknown]
  - Bipolar disorder [Not Recovered/Not Resolved]
  - Infection [Unknown]
  - Amnesia [Unknown]
